FAERS Safety Report 12763213 (Version 1)
Quarter: 2016Q3

REPORT INFORMATION
  Report Type: Spontaneous
  Country: FI (occurrence: FI)
  Receive Date: 20160920
  Receipt Date: 20160920
  Transmission Date: 20161109
  Serious: Yes (Disabling)
  Sender: FDA-Public Use
  Company Number: PHHY2016FI125728

PATIENT
  Age: 55 Year
  Sex: Male

DRUGS (2)
  1. MOCLOBEMIDE [Concomitant]
     Active Substance: MOCLOBEMIDE
     Indication: PANIC DISORDER
     Dosage: 150 MG, QD
     Route: 048
  2. FLUSHNIL [Suspect]
     Active Substance: VALACYCLOVIR HYDROCHLORIDE
     Indication: PROPHYLAXIS
     Dosage: 5 G/L, UNK
     Route: 048
     Dates: start: 201606, end: 201606

REACTIONS (1)
  - Parosmia [Not Recovered/Not Resolved]

NARRATIVE: CASE EVENT DATE: 201606
